FAERS Safety Report 7537232-X (Version None)
Quarter: 2011Q2

REPORT INFORMATION
  Report Type: 
  Country: None (occurrence: None)
  Receive Date: 20110609
  Receipt Date: 20110606
  Transmission Date: 20111010
  Serious: No
  Sender: FDA-Public Use
  Company Number: US-TEVA-285065USA

PATIENT
  Age: 26 Year
  Sex: Female
  Weight: 49.032 kg

DRUGS (1)
  1. PLAN B ONE-STEP [Suspect]
     Indication: POST COITAL CONTRACEPTION
     Dosage: 1.5 MILLIGRAM;
     Route: 048

REACTIONS (4)
  - MENSTRUATION DELAYED [None]
  - MENSTRUATION IRREGULAR [None]
  - BREAST PAIN [None]
  - FATIGUE [None]
